FAERS Safety Report 19113809 (Version 1)
Quarter: 2021Q2

REPORT INFORMATION
  Report Type: Spontaneous
  Country: US (occurrence: US)
  Receive Date: 20210408
  Receipt Date: 20210408
  Transmission Date: 20210717
  Serious: Yes (Other)
  Sender: FDA-Public Use
  Company Number: US-SA-2021SA107708

PATIENT
  Sex: Female

DRUGS (1)
  1. PLAVIX [Suspect]
     Active Substance: CLOPIDOGREL BISULFATE

REACTIONS (5)
  - Peripheral swelling [Recovered/Resolved]
  - Diabetes mellitus [Unknown]
  - Pain in extremity [Recovered/Resolved]
  - Eye haemorrhage [Unknown]
  - Rash [Recovered/Resolved]
